FAERS Safety Report 7366910-0 (Version None)
Quarter: 2011Q1

REPORT INFORMATION
  Report Type: 
  Country: None (occurrence: None)
  Receive Date: 20110322
  Receipt Date: 20110314
  Transmission Date: 20110831
  Serious: Yes (Hospitalization)
  Sender: FDA-Public Use
  Company Number: B0699709A

PATIENT
  Age: 46 Year
  Sex: Male
  Weight: 163.6 kg

DRUGS (7)
  1. LIPITOR [Concomitant]
  2. ACCUPRIL [Concomitant]
  3. ZETIA [Concomitant]
  4. AVANDIA [Suspect]
     Indication: DIABETES MELLITUS
     Dosage: 8MG PER DAY
     Route: 048
     Dates: start: 20000427, end: 20070101
  5. TOPROL-XL [Concomitant]
  6. INSULIN [Concomitant]
  7. ASPIRIN [Concomitant]

REACTIONS (1)
  - MYOCARDIAL INFARCTION [None]
